FAERS Safety Report 9809161 (Version 2)
Quarter: 2014Q1

REPORT INFORMATION
  Report Type: Report from Study
  Country: CA (occurrence: CA)
  Receive Date: 20140110
  Receipt Date: 20140110
  Transmission Date: 20141002
  Serious: Yes (Hospitalization)
  Sender: FDA-Public Use
  Company Number: PHHY2013CA052592

PATIENT
  Age: 34 Year
  Sex: Female

DRUGS (6)
  1. GLEEVEC [Suspect]
     Indication: CHRONIC MYELOID LEUKAEMIA
     Dosage: 400 MG, QD
     Route: 048
     Dates: start: 201005
  2. IRON SUPPLEMENTS [Suspect]
     Indication: BLOOD IRON DECREASED
     Dosage: UNK UKN, UNK
     Route: 048
  3. IRON SUPPLEMENTS [Suspect]
     Indication: HAEMOGLOBIN DECREASED
     Dosage: UNK UKN, UNK
     Route: 042
  4. ORAL CONTRACEPTIVE NOS [Concomitant]
     Dosage: UNK UKN, UNK
  5. ANTICOAGULANTS [Concomitant]
     Dosage: UNK UKN, UNK
     Route: 065
  6. OLANZAPINE [Concomitant]
     Dosage: UNK UKN, QHS

REACTIONS (21)
  - Feeling abnormal [Unknown]
  - Anxiety [Unknown]
  - Concussion [Unknown]
  - Body temperature fluctuation [Unknown]
  - Drug intolerance [Unknown]
  - Blood iron decreased [Unknown]
  - Pain [Unknown]
  - Stress [Unknown]
  - Face injury [Unknown]
  - Disturbance in attention [Unknown]
  - Fall [Unknown]
  - Fatigue [Unknown]
  - Abdominal discomfort [Unknown]
  - Increased tendency to bruise [Unknown]
  - Malaise [Unknown]
  - Night sweats [Unknown]
  - Vomiting [Unknown]
  - Haematoma [Not Recovered/Not Resolved]
  - Haemarthrosis [Unknown]
  - Headache [Not Recovered/Not Resolved]
  - Menorrhagia [Unknown]
